FAERS Safety Report 17690552 (Version 3)
Quarter: 2021Q3

REPORT INFORMATION
  Report Type: Spontaneous
  Country: US (occurrence: US)
  Receive Date: 20200421
  Receipt Date: 20210907
  Transmission Date: 20211014
  Serious: Yes (Other)
  Sender: FDA-Public Use
  Company Number: US-ASTRAZENECA-2020SE51668

PATIENT
  Age: 43 Year
  Sex: Female
  Weight: 52.2 kg

DRUGS (76)
  1. MELOXICAM. [Concomitant]
     Active Substance: MELOXICAM
     Indication: PAIN
  2. AMITRIPTYLINE [Concomitant]
     Active Substance: AMITRIPTYLINE
     Indication: NEURALGIA
  3. FAMOTIDINE. [Concomitant]
     Active Substance: FAMOTIDINE
  4. SODIUM CHLORIDE. [Concomitant]
     Active Substance: SODIUM CHLORIDE
  5. AMOX TR?CLAV [Concomitant]
  6. PRILOSEC [Suspect]
     Active Substance: OMEPRAZOLE MAGNESIUM
     Indication: GASTROOESOPHAGEAL REFLUX DISEASE
     Dosage: GENERIC (20?40 MG DAILY)
     Route: 065
     Dates: start: 2008, end: 2013
  7. PRILOSEC [Suspect]
     Active Substance: OMEPRAZOLE MAGNESIUM
     Indication: GASTROOESOPHAGEAL REFLUX DISEASE
     Route: 048
     Dates: start: 2014, end: 2015
  8. PROTONIX [Suspect]
     Active Substance: PANTOPRAZOLE SODIUM
     Indication: GASTROOESOPHAGEAL REFLUX DISEASE
     Route: 065
     Dates: start: 200301, end: 201612
  9. PROTONIX [Suspect]
     Active Substance: PANTOPRAZOLE SODIUM
     Indication: GASTROOESOPHAGEAL REFLUX DISEASE
     Route: 065
     Dates: start: 20070315, end: 20070611
  10. PROTONIX [Suspect]
     Active Substance: PANTOPRAZOLE SODIUM
     Indication: GASTROOESOPHAGEAL REFLUX DISEASE
     Dosage: GENERIC
     Route: 065
     Dates: start: 2015, end: 2016
  11. DICYCLOMINE [Concomitant]
     Active Substance: DICYCLOMINE HYDROCHLORIDE
  12. AMOXICILLIN. [Concomitant]
     Active Substance: AMOXICILLIN
     Indication: INFECTION
  13. LOVASTATIN. [Concomitant]
     Active Substance: LOVASTATIN
     Indication: BLOOD CHOLESTEROL INCREASED
  14. METRONIDAZOLE. [Concomitant]
     Active Substance: METRONIDAZOLE
  15. HYDROCODONE/PARACETAMOL [Concomitant]
     Active Substance: ACETAMINOPHEN\HYDROCODONE BITARTRATE
  16. PREMARIN [Concomitant]
     Active Substance: ESTROGENS, CONJUGATED
  17. NEOMYCIN?POLYMYXIN [Concomitant]
  18. CARAFATE [Concomitant]
     Active Substance: SUCRALFATE
  19. TRIAMTERENE/BENZTHIAZIDE [Concomitant]
  20. NEXIUM [Suspect]
     Active Substance: ESOMEPRAZOLE MAGNESIUM
     Indication: GASTROOESOPHAGEAL REFLUX DISEASE
     Route: 048
     Dates: start: 200301, end: 201612
  21. PERCOCET [Concomitant]
     Active Substance: ACETAMINOPHEN\OXYCODONE HYDROCHLORIDE
  22. MELOXICAM. [Concomitant]
     Active Substance: MELOXICAM
     Indication: ARTHRITIS
  23. ADVAIR?DISKUS [Concomitant]
  24. HYDROCORTISONE. [Concomitant]
     Active Substance: HYDROCORTISONE
  25. ZOFRAN [Concomitant]
     Active Substance: ONDANSETRON HYDROCHLORIDE
  26. MIRTAZAPINE. [Concomitant]
     Active Substance: MIRTAZAPINE
  27. OXYMORPHONE [Concomitant]
     Active Substance: OXYMORPHONE
  28. PRILOSEC [Suspect]
     Active Substance: OMEPRAZOLE MAGNESIUM
     Indication: GASTROOESOPHAGEAL REFLUX DISEASE
     Route: 048
     Dates: start: 200301, end: 201612
  29. PROTONIX [Suspect]
     Active Substance: PANTOPRAZOLE SODIUM
     Indication: GASTROOESOPHAGEAL REFLUX DISEASE
     Dosage: GENERIC
     Route: 065
     Dates: start: 20150225, end: 20160225
  30. ALPRAZOLAM. [Concomitant]
     Active Substance: ALPRAZOLAM
  31. ATORVASTATIN [Concomitant]
     Active Substance: ATORVASTATIN
     Indication: BLOOD CHOLESTEROL INCREASED
  32. BUSPIRONE [Concomitant]
     Active Substance: BUSPIRONE HYDROCHLORIDE
  33. CHLORHEXADONE [Concomitant]
  34. DIOVAN [Concomitant]
     Active Substance: VALSARTAN
  35. TOPIRAMATE. [Concomitant]
     Active Substance: TOPIRAMATE
  36. DICYCLOMINE [Concomitant]
     Active Substance: DICYCLOMINE HYDROCHLORIDE
  37. NUCYNTA [Concomitant]
     Active Substance: TAPENTADOL HYDROCHLORIDE
  38. NITROFURANTOIN. [Concomitant]
     Active Substance: NITROFURANTOIN
  39. ESTRADIOL. [Concomitant]
     Active Substance: ESTRADIOL
  40. ALCOHOL. [Concomitant]
     Active Substance: ALCOHOL
  41. DULOXETINE. [Concomitant]
     Active Substance: DULOXETINE
  42. NEXIUM [Suspect]
     Active Substance: ESOMEPRAZOLE MAGNESIUM
     Indication: GASTROOESOPHAGEAL REFLUX DISEASE
     Route: 048
     Dates: start: 2005, end: 2016
  43. PROTONIX [Suspect]
     Active Substance: PANTOPRAZOLE SODIUM
     Indication: GASTROOESOPHAGEAL REFLUX DISEASE
     Route: 065
     Dates: start: 2006, end: 2007
  44. TRAMADOL. [Concomitant]
     Active Substance: TRAMADOL
     Indication: PAIN
  45. FENTANYL. [Concomitant]
     Active Substance: FENTANYL
  46. CIPROFLOXACIN. [Concomitant]
     Active Substance: CIPROFLOXACIN
     Indication: INFECTION
  47. FLUOXETINE [Concomitant]
     Active Substance: FLUOXETINE HYDROCHLORIDE
     Indication: ANTIDEPRESSANT DRUG LEVEL
  48. LATEX [Concomitant]
     Active Substance: NATURAL LATEX RUBBER
  49. OPANA [Concomitant]
     Active Substance: OXYMORPHONE HYDROCHLORIDE
  50. MORPHINE [Concomitant]
     Active Substance: MORPHINE
  51. TIZANIDINE HYDROCHLORIDE. [Concomitant]
     Active Substance: TIZANIDINE HYDROCHLORIDE
  52. OXYCODONE HYDROCHLORIDE. [Concomitant]
     Active Substance: OXYCODONE HYDROCHLORIDE
  53. NEXIUM 24HR [Suspect]
     Active Substance: ESOMEPRAZOLE MAGNESIUM
     Route: 048
     Dates: start: 200301, end: 201612
  54. NEXIUM 24HR [Suspect]
     Active Substance: ESOMEPRAZOLE MAGNESIUM
     Route: 048
     Dates: start: 2014, end: 2016
  55. PRILOSEC OTC [Suspect]
     Active Substance: OMEPRAZOLE MAGNESIUM
     Indication: GASTROOESOPHAGEAL REFLUX DISEASE
     Route: 048
     Dates: start: 2014, end: 2016
  56. CEFUROXIME. [Concomitant]
     Active Substance: CEFUROXIME
     Indication: INFECTION
  57. RANITIDINE. [Concomitant]
     Active Substance: RANITIDINE
  58. LYRICA [Concomitant]
     Active Substance: PREGABALIN
  59. POLYETHYLENE GLYCOL [Concomitant]
     Active Substance: POLYETHYLENE GLYCOLS
  60. SMZ?TMP [Concomitant]
     Active Substance: SULFAMETHOXAZOLE\TRIMETHOPRIM
  61. IMITREX [Concomitant]
     Active Substance: SUMATRIPTAN SUCCINATE
  62. MONTELUKAST [Concomitant]
     Active Substance: MONTELUKAST SODIUM
  63. SIMVATSTATIN [Concomitant]
     Indication: BLOOD CHOLESTEROL INCREASED
  64. AZITHROMYCIN ANHYDROUS. [Concomitant]
     Active Substance: AZITHROMYCIN ANHYDROUS
     Indication: INFECTION
  65. AMITRIPTYLINE [Concomitant]
     Active Substance: AMITRIPTYLINE
     Indication: ANTIDEPRESSANT DRUG LEVEL
  66. IBUPROFEN. [Concomitant]
     Active Substance: IBUPROFEN
     Indication: PAIN
  67. MULTIVITAMINS [Concomitant]
     Active Substance: VITAMINS
  68. FLUCONAZOLE. [Concomitant]
     Active Substance: FLUCONAZOLE
  69. SUMATRIPTAN SUCCINATE. [Concomitant]
     Active Substance: SUMATRIPTAN SUCCINATE
  70. LIDOCAINE. [Concomitant]
     Active Substance: LIDOCAINE
  71. LORATADINE. [Concomitant]
     Active Substance: LORATADINE
  72. BACLOFEN. [Concomitant]
     Active Substance: BACLOFEN
  73. VENTOLIN HFA [Concomitant]
     Active Substance: ALBUTEROL SULFATE
  74. METHYLPREDNISOLONE. [Concomitant]
     Active Substance: METHYLPREDNISOLONE
  75. CARBIDOPA. [Concomitant]
     Active Substance: CARBIDOPA
  76. CREON [Concomitant]
     Active Substance: PANCRELIPASE AMYLASE\PANCRELIPASE LIPASE\PANCRELIPASE PROTEASE

REACTIONS (1)
  - Chronic kidney disease [Not Recovered/Not Resolved]

NARRATIVE: CASE EVENT DATE: 2015
